FAERS Safety Report 4291469-4 (Version None)
Quarter: 2004Q1

REPORT INFORMATION
  Report Type: 
  Country: None (occurrence: None)
  Receive Date: 20040126
  Receipt Date: 20031021
  Transmission Date: 20041129
  Serious: No
  Sender: FDA-Public Use
  Company Number: USA031050555

PATIENT
  Age: 64 Year
  Sex: Female

DRUGS (2)
  1. FORTEO [Suspect]
  2. EVISTA [Suspect]
     Dates: start: 19990101

REACTIONS (3)
  - CARDIAC MURMUR [None]
  - OVERDOSE [None]
  - PALPITATIONS [None]
